FAERS Safety Report 22586133 (Version 1)
Quarter: 2023Q2

REPORT INFORMATION
  Report Type: Report from Study
  Country: CN (occurrence: CN)
  Receive Date: 20230610
  Receipt Date: 20230610
  Transmission Date: 20230722
  Serious: Yes (Other)
  Sender: FDA-Public Use
  Company Number: CN-SUN PHARMACEUTICAL INDUSTRIES LTD-2023R1-394000

PATIENT
  Age: 57 Year
  Sex: Male
  Weight: 82 kg

DRUGS (5)
  1. HYDROXYCHLOROQUINE [Suspect]
     Active Substance: HYDROXYCHLOROQUINE
     Indication: COVID-19
     Dosage: 0.2 GRAM, TID
     Route: 048
  2. ACETAMINOPHEN\TRAMADOL [Suspect]
     Active Substance: ACETAMINOPHEN\TRAMADOL
     Indication: COVID-19
     Dosage: 0.2 GRAM, TID
     Route: 048
  3. HERBALS [Suspect]
     Active Substance: HERBALS
     Indication: COVID-19
     Dosage: 50 ML, BID
     Route: 042
  4. ULINASTATIN [Suspect]
     Active Substance: ULINASTATIN
     Indication: COVID-19
     Dosage: 100 TU, TID
     Route: 042
  5. THYMALFASIN [Suspect]
     Active Substance: THYMALFASIN
     Indication: COVID-19
     Dosage: 1.6 MILLIGRAM, QD
     Route: 058

REACTIONS (1)
  - Condition aggravated [Unknown]
